FAERS Safety Report 7893311-9 (Version None)
Quarter: 2011Q4

REPORT INFORMATION
  Report Type: 
  Country: None (occurrence: None)
  Receive Date: 20111104
  Receipt Date: 20111101
  Transmission Date: 20120403
  Serious: Yes (Hospitalization)
  Sender: FDA-Public Use
  Company Number: CH-PFIZER INC-2011266616

PATIENT
  Age: 71 Year
  Sex: Female
  Weight: 58 kg

DRUGS (16)
  1. KEPPRA [Suspect]
     Dosage: 500 MG, 2X/DAY
     Route: 048
     Dates: start: 20110906, end: 20110907
  2. DIOVAN [Suspect]
     Dosage: 80 MG, 2X/DAY
     Dates: start: 20110814
  3. TEGRETOL [Suspect]
     Indication: EPILEPSY
     Dosage: 200 MG, 2X/DAY
     Route: 048
     Dates: start: 20110815, end: 20110819
  4. LEVOTHYROXINE SODIUM [Concomitant]
     Dosage: 0.05 MG, 1X/DAY
     Route: 048
  5. TEGRETOL [Suspect]
     Dosage: 200 MG, 1X/DAY
     Route: 048
     Dates: start: 20110823, end: 20110825
  6. TEGRETOL [Suspect]
     Dosage: 200 MG, 2X/DAY
     Route: 048
     Dates: start: 20110826, end: 20110901
  7. KEPPRA [Suspect]
     Dosage: 500 MG, 3X/DAY
     Route: 048
     Dates: start: 20110903, end: 20110905
  8. AUGMENTIN [Concomitant]
     Dosage: 1 G, 2X/DAY
     Route: 048
     Dates: start: 20110821, end: 20110826
  9. TEGRETOL [Suspect]
     Dosage: 200 MG, 1X/DAY
     Route: 048
     Dates: start: 20110902, end: 20110903
  10. URBANYL [Concomitant]
     Dosage: 5MG INTHE MORNING, 10MG IN THE EVENING
     Route: 048
     Dates: start: 20110822, end: 20110824
  11. HYGROTON [Suspect]
     Dosage: 25 MG, SINGLE
     Route: 048
     Dates: start: 20110819, end: 20110819
  12. KEPPRA [Suspect]
     Dosage: 500MG MORNING / 250MG EVENING
     Route: 048
     Dates: start: 20110908
  13. NORVASC [Suspect]
     Dosage: UNK
     Route: 048
     Dates: start: 20110817
  14. NORVASC [Suspect]
     Dosage: 5 MG, 1X/DAY
     Route: 048
     Dates: start: 20110901, end: 20110906
  15. KEPPRA [Suspect]
     Indication: EPILEPSY
     Dosage: 500 MG, 2X/DAY
     Route: 048
     Dates: start: 20110901, end: 20110902
  16. DIOVAN [Suspect]
     Indication: HYPERTENSION
     Dosage: 40 MG, 1X/DAY
     Dates: end: 20110813

REACTIONS (6)
  - SYNCOPE [None]
  - BLOOD OSMOLARITY DECREASED [None]
  - HYPONATRAEMIA [None]
  - HEAD DISCOMFORT [None]
  - DIZZINESS [None]
  - FATIGUE [None]
